FAERS Safety Report 6148424-9 (Version None)
Quarter: 2009Q2

REPORT INFORMATION
  Report Type: 
  Country: None (occurrence: None)
  Receive Date: 20090408
  Receipt Date: 20090408
  Transmission Date: 20091009
  Serious: Yes (Other)
  Sender: FDA-Public Use
  Company Number: US-PFIZER INC-2005107960

PATIENT
  Sex: Female
  Weight: 62.6 kg

DRUGS (6)
  1. CELEBREX [Suspect]
     Indication: ARTHRITIS
     Route: 048
     Dates: start: 19990319
  2. METOPROLOL TARTRATE [Concomitant]
     Route: 065
  3. SYNTHROID [Concomitant]
     Route: 065
  4. VITAMINS [Concomitant]
     Route: 065
  5. ALL OTHER THERAPEUTIC PRODUCTS [Concomitant]
  6. ACETYLSALICYLIC ACID [Concomitant]

REACTIONS (8)
  - BODY HEIGHT DECREASED [None]
  - CARDIAC VALVE DISEASE [None]
  - DRUG INEFFECTIVE [None]
  - GAIT DISTURBANCE [None]
  - GASTRIC DISORDER [None]
  - KNEE OPERATION [None]
  - MYOCARDIAL INFARCTION [None]
  - WEIGHT DECREASED [None]
